FAERS Safety Report 15592506 (Version 2)
Quarter: 2018Q4

REPORT INFORMATION
  Report Type: Spontaneous
  Country: JP (occurrence: JP)
  Receive Date: 20181107
  Receipt Date: 20181114
  Transmission Date: 20190205
  Serious: Yes (Hospitalization, Other)
  Sender: FDA-Public Use
  Company Number: JP-APOTEX-2018AP024025

PATIENT
  Sex: Female

DRUGS (3)
  1. PAXIL CR [Suspect]
     Active Substance: PAROXETINE HYDROCHLORIDE
     Dosage: UNK UNK, QD
     Route: 048
     Dates: start: 201810
  2. PAXIL CR [Suspect]
     Active Substance: PAROXETINE HYDROCHLORIDE
     Indication: AGITATION
     Dosage: 25 MG, 1D
     Route: 048
  3. PAXIL CR [Suspect]
     Active Substance: PAROXETINE HYDROCHLORIDE
     Dosage: NO ADMINISTRATION
     Route: 048

REACTIONS (6)
  - Ill-defined disorder [Recovering/Resolving]
  - Inappropriate schedule of product administration [Unknown]
  - Hospitalisation [Unknown]
  - Agitation [Unknown]
  - Intercepted product prescribing error [Unknown]
  - Product use issue [Unknown]

NARRATIVE: CASE EVENT DATE: 201810
